FAERS Safety Report 16251785 (Version 4)
Quarter: 2019Q4

REPORT INFORMATION
  Report Type: Spontaneous
  Country: JP (occurrence: JP)
  Receive Date: 20190429
  Receipt Date: 20191003
  Transmission Date: 20200122
  Serious: Yes (Other)
  Sender: FDA-Public Use
  Company Number: JP-009507513-1904JPN003127J

PATIENT
  Age: 74 Year
  Sex: Male
  Weight: 67 kg

DRUGS (17)
  1. MOHRUS TAPE L [Concomitant]
     Active Substance: KETOPROFEN
     Dosage: 1 DOSAGE FORM, QD
     Route: 061
  2. EVAMYL [Concomitant]
     Active Substance: LORMETAZEPAM
     Dosage: 1 MILLIGRAM, QD
     Route: 048
  3. KEYTRUDA [Suspect]
     Active Substance: PEMBROLIZUMAB
     Indication: NON-SMALL CELL LUNG CANCER
     Dosage: 200 MILLIGRAM, Q3W
     Route: 041
     Dates: start: 20190417, end: 20190417
  4. KEYTRUDA [Suspect]
     Active Substance: PEMBROLIZUMAB
     Dosage: 200 MILLIGRAM, Q3W
     Route: 041
     Dates: start: 20190517
  5. ATORVASTATIN [Concomitant]
     Active Substance: ATORVASTATIN
     Dosage: 10 MILLIGRAM, QD
     Route: 048
  6. PANVITAN [Concomitant]
     Active Substance: VITAMINS
     Dosage: 1 GRAM, QD
     Route: 048
  7. CILOSTAZOL. [Concomitant]
     Active Substance: CILOSTAZOL
     Dosage: 100 MILLIGRAM, BID
     Route: 048
  8. BELSOMRA [Concomitant]
     Active Substance: SUVOREXANT
     Dosage: 15 MILLIGRAM, QD
     Route: 048
  9. CARBOPLATIN. [Concomitant]
     Active Substance: CARBOPLATIN
     Indication: NON-SMALL CELL LUNG CANCER
     Dosage: 466 MILLIGRAM
     Route: 065
     Dates: start: 20190417, end: 20190417
  10. VALSARTAN. [Concomitant]
     Active Substance: VALSARTAN
     Dosage: 80 MILLIGRAM, QD
     Route: 048
  11. ATENOLOL. [Concomitant]
     Active Substance: ATENOLOL
     Dosage: 25 MILLIGRAM, QD
     Route: 048
  12. NIFEDIPINE CR [Concomitant]
     Active Substance: NIFEDIPINE
     Dosage: 40 MILLIGRAM, QD
     Route: 048
  13. XARELTO [Concomitant]
     Active Substance: RIVAROXABAN
     Dosage: 15 MILLIGRAM, QD
     Route: 048
  14. TRAZODONE HYDROCHLORIDE. [Concomitant]
     Active Substance: TRAZODONE HYDROCHLORIDE
     Dosage: 50 MILLIGRAM, QD
     Route: 048
  15. TAKECAB [Concomitant]
     Active Substance: VONOPRAZAN FUMURATE
     Dosage: 10 MILLIGRAM, QD
     Route: 048
  16. PEMETREXED DISODIUM [Concomitant]
     Active Substance: PEMETREXED DISODIUM
     Indication: NON-SMALL CELL LUNG CANCER
     Dosage: 886 MILLIGRAM
     Route: 065
     Dates: start: 20190417, end: 20190417
  17. LORAMET [Concomitant]
     Active Substance: LORMETAZEPAM
     Dosage: 1 MILLIGRAM, QD
     Route: 048

REACTIONS (4)
  - Glomerular vascular disorder [Unknown]
  - Eye movement disorder [Recovered/Resolved]
  - Diplopia [Recovered/Resolved]
  - Bone marrow failure [Unknown]

NARRATIVE: CASE EVENT DATE: 2019
